FAERS Safety Report 15992356 (Version 2)
Quarter: 2019Q1

REPORT INFORMATION
  Report Type: Spontaneous
  Country: US (occurrence: US)
  Receive Date: 20190221
  Receipt Date: 20190311
  Transmission Date: 20190418
  Serious: No
  Sender: FDA-Public Use
  Company Number: US-ALLERGAN-1837776US

PATIENT
  Age: 54 Year
  Sex: Female

DRUGS (2)
  1. OXYTROL FOR WOMEN [Suspect]
     Active Substance: OXYBUTYNIN
     Indication: INCONTINENCE
     Dosage: 1 DF, UNK, EVERY 4 DAYS
     Route: 062
     Dates: start: 201806, end: 201807
  2. UNSPECIFIED MEDICINE [Concomitant]
     Indication: HYPERTENSION
     Dosage: UNK
     Route: 065

REACTIONS (2)
  - Application site discolouration [Not Recovered/Not Resolved]
  - Drug ineffective [Unknown]
